FAERS Safety Report 18398229 (Version 1)
Quarter: 2020Q4

REPORT INFORMATION
  Report Type: Spontaneous
  Country: US (occurrence: US)
  Receive Date: 20201019
  Receipt Date: 20201019
  Transmission Date: 20210114
  Serious: Yes (Hospitalization)
  Sender: FDA-Public Use
  Company Number: None

PATIENT
  Age: 52 Year
  Sex: Female

DRUGS (1)
  1. AMBRISENTAN 10MG TABLETS 30/B0: 10MG [Suspect]
     Active Substance: AMBRISENTAN
     Indication: PULMONARY ARTERIAL HYPERTENSION
     Route: 048
     Dates: start: 20190117

REACTIONS (6)
  - Systemic inflammatory response syndrome [None]
  - Pyrexia [None]
  - Cellulitis [None]
  - Asthenia [None]
  - Pneumonia aspiration [None]
  - Chills [None]

NARRATIVE: CASE EVENT DATE: 20200924
